FAERS Safety Report 11463373 (Version 1)
Quarter: 2015Q3

REPORT INFORMATION
  Report Type: Spontaneous
  Country: US (occurrence: US)
  Receive Date: 20150831
  Receipt Date: 20150831
  Transmission Date: 20151125
  Serious: No
  Sender: FDA-Public Use
  Company Number: US-ELI_LILLY_AND_COMPANY-US201102007457

PATIENT
  Age: 37 Year
  Sex: Female

DRUGS (1)
  1. CYMBALTA [Suspect]
     Active Substance: DULOXETINE HYDROCHLORIDE
     Indication: MAJOR DEPRESSION
     Dosage: 60 MG, UNKNOWN
     Dates: start: 201101, end: 20110221

REACTIONS (6)
  - Hyperhidrosis [Recovering/Resolving]
  - Vomiting [Recovered/Resolved]
  - Drug withdrawal syndrome [Recovering/Resolving]
  - Hot flush [Recovering/Resolving]
  - Muscle tightness [Recovering/Resolving]
  - Dizziness [Recovering/Resolving]

NARRATIVE: CASE EVENT DATE: 20110221
